FAERS Safety Report 6821536-X (Version None)
Quarter: 2010Q3

REPORT INFORMATION
  Report Type: 
  Country: None (occurrence: None)
  Receive Date: 20100707
  Receipt Date: 20090130
  Transmission Date: 20110219
  Serious: No
  Sender: FDA-Public Use
  Company Number: US-PFIZER INC-2009167754

PATIENT
  Sex: Male
  Weight: 71.667 kg

DRUGS (2)
  1. SERTRALINE HCL [Suspect]
     Indication: MOOD SWINGS
     Dosage: 50 MG, 1X/DAY
     Dates: start: 20080101, end: 20081101
  2. ZOLOFT [Suspect]
     Indication: MOOD SWINGS
     Dosage: 50 MG, 1X/DAY
     Dates: start: 20081130

REACTIONS (1)
  - FLATULENCE [None]
